FAERS Safety Report 4990159-X (Version None)
Quarter: 2006Q2

REPORT INFORMATION
  Report Type: 
  Country: None (occurrence: None)
  Receive Date: 20060501
  Receipt Date: 20060501
  Transmission Date: 20061013
  Serious: Yes (Hospitalization)
  Sender: FDA-Public Use
  Company Number: None

PATIENT
  Age: 42 Year
  Sex: Male
  Weight: 77 kg

DRUGS (5)
  1. AMBIEN [Suspect]
     Indication: SLEEP DISORDER
     Dosage: 20MG Q BEDTIME PO
     Route: 048
     Dates: start: 20050901, end: 20060217
  2. WELLBUTRIN [Concomitant]
  3. REMERON [Concomitant]
  4. ATIVAN [Concomitant]
  5. TYLENOL (CAPLET) [Concomitant]

REACTIONS (3)
  - AMNESIA [None]
  - ROAD TRAFFIC ACCIDENT [None]
  - SLEEP WALKING [None]
